FAERS Safety Report 7915459-2 (Version None)
Quarter: 2011Q4

REPORT INFORMATION
  Report Type: 
  Country: None (occurrence: None)
  Receive Date: 20111115
  Receipt Date: 20111102
  Transmission Date: 20120403
  Serious: Yes (Disabling, Congenital Anomaly)
  Sender: FDA-Public Use
  Company Number: DE-ELI_LILLY_AND_COMPANY-DE201111000636

PATIENT

DRUGS (4)
  1. CYMBALTA [Suspect]
     Dosage: 30 MG, QD
     Route: 064
  2. CYMBALTA [Suspect]
     Indication: PERSONALITY DISORDER
     Dosage: 30 MG, QD
     Route: 064
  3. TRIMIPRAMINE MALEATE [Concomitant]
     Indication: PERSONALITY DISORDER
     Dosage: 50 MG, QD
     Route: 064
  4. TRIMIPRAMINE MALEATE [Concomitant]
     Dosage: 50 MG, QD
     Route: 064

REACTIONS (2)
  - FOETAL EXPOSURE DURING PREGNANCY [None]
  - SPINA BIFIDA [None]
